FAERS Safety Report 6647707-3 (Version None)
Quarter: 2010Q1

REPORT INFORMATION
  Report Type: 
  Country: None (occurrence: None)
  Receive Date: 20100323
  Receipt Date: 20100323
  Transmission Date: 20100710
  Serious: No
  Sender: FDA-Public Use
  Company Number: None

PATIENT
  Age: 38 Year
  Sex: Female
  Weight: 48.5349 kg

DRUGS (1)
  1. MURINE FOR EAR WAX REMOVAL DROPS CARBAMIDE PEROXIDE 6.5% MEDTECH PRODU [Suspect]
     Indication: CERUMEN REMOVAL
     Dosage: 3 DROPS IN MY LEFT EAR ONCE OTHER
     Route: 050
     Dates: start: 20100319, end: 20100319

REACTIONS (1)
  - EAR PAIN [None]
